FAERS Safety Report 24025581 (Version 2)
Quarter: 2024Q3

REPORT INFORMATION
  Report Type: Report from Study
  Country: RO (occurrence: RO)
  Receive Date: 20240628
  Receipt Date: 20240710
  Transmission Date: 20241017
  Serious: No
  Sender: ROCHE
  Company Number: RO-ROCHE-3419474

PATIENT
  Age: 53 Year
  Sex: Female
  Weight: 60.0 kg

DRUGS (2)
  1. PHESGO [Suspect]
     Active Substance: HYALURONIDASE-ZZXF\PERTUZUMAB\TRASTUZUMAB
     Indication: Breast neoplasm
     Dosage: DOSE: 600MG/600MG
     Route: 065
  2. ADO-TRASTUZUMAB EMTANSINE [Suspect]
     Active Substance: ADO-TRASTUZUMAB EMTANSINE
     Indication: Breast neoplasm
     Route: 058
     Dates: start: 202207

REACTIONS (6)
  - Apathy [Unknown]
  - Insomnia [Unknown]
  - Memory impairment [Unknown]
  - Drug ineffective [Unknown]
  - Liver function test increased [Unknown]
  - Lymphadenopathy [Unknown]
